FAERS Safety Report 4759026-0 (Version None)
Quarter: 2005Q3

REPORT INFORMATION
  Report Type: 
  Country: None (occurrence: None)
  Receive Date: 20050901
  Receipt Date: 20050713
  Transmission Date: 20060218
  Serious: Yes (Hospitalization)
  Sender: FDA-Public Use
  Company Number: PHBS2005JP10018

PATIENT
  Age: 31 Year
  Sex: Female

DRUGS (1)
  1. TEGRETOL [Suspect]
     Indication: TEMPORAL LOBE EPILEPSY
     Dosage: UNK, UNK
     Route: 048
     Dates: start: 20020101

REACTIONS (18)
  - 17 KETOSTEROIDS URINE DECREASED [None]
  - ADRENOCORTICAL INSUFFICIENCY ACUTE [None]
  - ANOREXIA [None]
  - BLOOD CORTICOTROPHIN DECREASED [None]
  - BLOOD CORTISOL ABNORMAL [None]
  - BLOOD CREATINE PHOSPHOKINASE INCREASED [None]
  - COGNITIVE DISORDER [None]
  - DECREASED ACTIVITY [None]
  - DEHYDROEPIANDROSTERONE DECREASED [None]
  - ENTERITIS [None]
  - GLASGOW COMA SCALE ABNORMAL [None]
  - HYPERHIDROSIS [None]
  - HYPONATRAEMIA [None]
  - HYPOTENSION [None]
  - INFLAMMATION [None]
  - NEUROLEPTIC MALIGNANT SYNDROME [None]
  - PYREXIA [None]
  - SINUS TACHYCARDIA [None]
